FAERS Safety Report 9972716 (Version 1)
Quarter: 2014Q1

REPORT INFORMATION
  Report Type: Spontaneous
  Country: US (occurrence: US)
  Receive Date: 20140306
  Receipt Date: 20140306
  Transmission Date: 20141002
  Serious: No
  Sender: FDA-Public Use
  Company Number: US-PFIZER INC-2014059568

PATIENT
  Age: 65 Year
  Sex: Male

DRUGS (8)
  1. SUTENT [Suspect]
     Indication: RENAL CANCER METASTATIC
     Dosage: 50 MG, CYCLIC ONCE DAILY (4WKS 2WKS OFF)
     Route: 048
     Dates: start: 20140117
  2. KLONOPIN [Concomitant]
     Dosage: UNK
  3. VERAPAMIL [Concomitant]
     Dosage: UNK
  4. TOPIRAMATE [Concomitant]
     Dosage: UNK
  5. OMEPRAZOLE [Concomitant]
     Dosage: UNK
  6. VIT D [Concomitant]
     Dosage: UNK
  7. FISH OIL [Concomitant]
     Dosage: UNK
  8. LISINOPRIL [Concomitant]
     Dosage: UNK

REACTIONS (4)
  - Stomatitis [Unknown]
  - Dry skin [Unknown]
  - Rash [Unknown]
  - Blood pressure increased [Unknown]
